FAERS Safety Report 6492611-7 (Version None)
Quarter: 2009Q4

REPORT INFORMATION
  Report Type: 
  Country: None (occurrence: None)
  Receive Date: 20091214
  Receipt Date: 20091203
  Transmission Date: 20100525
  Serious: Yes (Hospitalization, Other)
  Sender: FDA-Public Use
  Company Number: US-SANOFI-AVENTIS-2009SA007249

PATIENT
  Age: 82 Year
  Sex: Male

DRUGS (2)
  1. GLIMEPIRIDE [Suspect]
     Route: 048
     Dates: start: 20090901, end: 20091101
  2. COUMADIN [Concomitant]
     Route: 065

REACTIONS (4)
  - DECREASED APPETITE [None]
  - HEPATIC CANCER STAGE IV [None]
  - PALLOR [None]
  - YELLOW SKIN [None]
